FAERS Safety Report 5357536-9 (Version None)
Quarter: 2007Q2

REPORT INFORMATION
  Report Type: 
  Country: None (occurrence: None)
  Receive Date: 20070614
  Receipt Date: 20070601
  Transmission Date: 20071010
  Serious: Yes (Other)
  Sender: FDA-Public Use
  Company Number: US-ELI_LILLY_AND_COMPANY-US200706000348

PATIENT
  Age: 55 Year
  Sex: Female
  Weight: 108.84 kg

DRUGS (4)
  1. CYMBALTA [Suspect]
     Indication: ARTHRALGIA
     Dosage: 60 MG, UNK
     Dates: start: 20060101, end: 20070101
  2. METOLAZONE [Concomitant]
     Dosage: UNK MG, UNK
  3. HYDROCODONE BITARTRATE [Concomitant]
     Dosage: UNK MG, UNK
  4. NAPROXEN [Concomitant]
     Dosage: 500 MG, UNK

REACTIONS (6)
  - FALL [None]
  - JOINT INJURY [None]
  - OEDEMA PERIPHERAL [None]
  - URINE OUTPUT DECREASED [None]
  - UTERINE DISORDER [None]
  - WEIGHT INCREASED [None]
